FAERS Safety Report 6370870-9 (Version None)
Quarter: 2009Q3

REPORT INFORMATION
  Report Type: 
  Country: None (occurrence: None)
  Receive Date: 20090923
  Receipt Date: 20071113
  Transmission Date: 20100115
  Serious: Yes (Other)
  Sender: FDA-Public Use
  Company Number: US-ASTRAZENECA-2006UW22723

PATIENT
  Age: 48 Year
  Sex: Female
  Weight: 77.6 kg

DRUGS (18)
  1. SEROQUEL [Suspect]
     Indication: POST-TRAUMATIC STRESS DISORDER
     Route: 048
     Dates: start: 20030101, end: 20050101
  2. SEROQUEL [Suspect]
     Indication: INSOMNIA
     Route: 048
     Dates: start: 20030101, end: 20050101
  3. SEROQUEL [Suspect]
     Indication: BIPOLAR DISORDER
     Route: 048
     Dates: start: 20030101, end: 20050101
  4. SEROQUEL [Suspect]
     Dosage: 25-50 MG
     Route: 048
     Dates: start: 20050216
  5. SEROQUEL [Suspect]
     Dosage: 25-50 MG
     Route: 048
     Dates: start: 20050216
  6. SEROQUEL [Suspect]
     Dosage: 25-50 MG
     Route: 048
     Dates: start: 20050216
  7. LEXAPRO [Concomitant]
     Route: 048
  8. LANOXIN [Concomitant]
     Dosage: 0.25 - 0.125 MG
     Route: 048
  9. LOPRESSOR [Concomitant]
     Route: 048
  10. ALDACTONE [Concomitant]
     Route: 048
  11. ZESTRIL [Concomitant]
     Route: 048
  12. ASPIRIN [Concomitant]
     Route: 048
  13. PAXIL [Concomitant]
     Indication: POST-TRAUMATIC STRESS DISORDER
     Route: 048
  14. PROTONIX [Concomitant]
     Route: 048
  15. TYLENOL (CAPLET) [Concomitant]
     Dosage: 325-1000 MG
     Route: 048
  16. AMBIEN [Concomitant]
     Route: 048
  17. ORETIC [Concomitant]
     Dosage: 0.5 X 25 MG PER ORAL ONCE A DAY
     Route: 048
  18. PROCARDIA XL [Concomitant]
     Indication: HYPERTENSION
     Route: 048

REACTIONS (2)
  - DIABETES MELLITUS [None]
  - PANCREATITIS [None]
